FAERS Safety Report 19781329 (Version 1)
Quarter: 2021Q3

REPORT INFORMATION
  Report Type: Report from Study
  Country: AR (occurrence: AR)
  Receive Date: 20210902
  Receipt Date: 20210902
  Transmission Date: 20211014
  Serious: Yes (Death, Life-Threatening)
  Sender: FDA-Public Use
  Company Number: AR-SA-2021SA289940

PATIENT
  Age: 72 Year
  Sex: Male

DRUGS (1)
  1. SEVELAMER CARBONATE. [Suspect]
     Active Substance: SEVELAMER CARBONATE
     Indication: HYPERPHOSPHATAEMIA
     Dosage: 6 DF, QD
     Route: 048
     Dates: start: 20180604

REACTIONS (2)
  - COVID-19 [Fatal]
  - SARS-CoV-2 test positive [Fatal]
